FAERS Safety Report 24818031 (Version 2)
Quarter: 2025Q1

REPORT INFORMATION
  Report Type: Report from Study
  Country: US (occurrence: US)
  Receive Date: 20250108
  Receipt Date: 20250315
  Transmission Date: 20250409
  Serious: Yes (Other)
  Sender: NOVARTIS
  Company Number: US-002147023-NVSC2024US043370

PATIENT
  Sex: Female

DRUGS (2)
  1. KESIMPTA [Suspect]
     Active Substance: OFATUMUMAB
     Indication: Product used for unknown indication
     Route: 058
     Dates: start: 20230419
  2. KESIMPTA [Suspect]
     Active Substance: OFATUMUMAB
     Dosage: 20 MG, QMO
     Route: 058

REACTIONS (15)
  - Progressive multiple sclerosis [Unknown]
  - Fall [Unknown]
  - Pain [Unknown]
  - Rib fracture [Unknown]
  - Seasonal allergy [Unknown]
  - Respiratory tract congestion [Unknown]
  - Wheezing [Unknown]
  - Aphonia [Unknown]
  - Head discomfort [Unknown]
  - Orthopnoea [Unknown]
  - Discomfort [Unknown]
  - Memory impairment [Unknown]
  - Cognitive disorder [Unknown]
  - Stress [Unknown]
  - Gait disturbance [Unknown]
